FAERS Safety Report 10618581 (Version 1)
Quarter: 2014Q4

REPORT INFORMATION
  Report Type: Spontaneous
  Country: JP (occurrence: JP)
  Receive Date: 20141202
  Receipt Date: 20141202
  Transmission Date: 20150529
  Serious: Yes (Death, Hospitalization)
  Sender: FDA-Public Use
  Company Number: JP-TEVA-524572ISR

PATIENT
  Sex: Male

DRUGS (10)
  1. FILGRASTIM BS INJ. NK (FILGRASTIM [GENETICAL RECOMBINATION]) [Suspect]
     Active Substance: FILGRASTIM
     Dosage: 75 MICROGRAM/M2 DAILY;
     Route: 058
     Dates: start: 20140813, end: 20140816
  2. FILGRASTIM BS INJ. NK (FILGRASTIM [GENETICAL RECOMBINATION]) [Suspect]
     Active Substance: FILGRASTIM
     Indication: NEUTROPENIA
     Dosage: 75 MICROGRAM/M2 DAILY;
     Route: 058
     Dates: start: 20140724, end: 20140727
  3. GRANISETRON [Concomitant]
     Active Substance: GRANISETRON
     Indication: PROPHYLAXIS
     Dosage: 3 MILLIGRAM DAILY;
     Route: 042
     Dates: start: 20140715, end: 20140715
  4. CALONAL [Concomitant]
     Active Substance: ACETAMINOPHEN
     Indication: PYREXIA
     Dosage: 400 MILLIGRAM DAILY;
     Route: 048
     Dates: start: 20140814, end: 20140902
  5. PROTECADIN [Concomitant]
     Active Substance: LAFUTIDINE
     Indication: PROPHYLAXIS
     Dosage: 10 MILLIGRAM DAILY;
     Route: 048
     Dates: start: 20140715, end: 20140902
  6. DUROTEP [Concomitant]
     Active Substance: FENTANYL
     Indication: LUNG NEOPLASM MALIGNANT
     Dosage: 2.1 MILLIGRAM DAILY;
     Route: 062
     Dates: start: 20140821, end: 20140902
  7. DOCETAXEL. [Concomitant]
     Active Substance: DOCETAXEL
     Indication: LUNG NEOPLASM MALIGNANT
     Dosage: 90 MILLIGRAM DAILY;
     Route: 042
     Dates: start: 20140715, end: 20140715
  8. DOCETAXEL. [Concomitant]
     Active Substance: DOCETAXEL
     Dosage: 90 MILLIGRAM DAILY;
     Route: 042
     Dates: start: 20140806, end: 20140806
  9. CIPROXAN [Concomitant]
     Active Substance: CIPROFLOXACIN
     Indication: PROPHYLAXIS
     Dosage: 400 MILLIGRAM DAILY;
     Route: 048
     Dates: start: 20140724
  10. GRANISETRON [Concomitant]
     Active Substance: GRANISETRON
     Dosage: 3 MILLIGRAM DAILY;
     Route: 042
     Dates: start: 20140806, end: 20140806

REACTIONS (1)
  - Decreased appetite [Fatal]

NARRATIVE: CASE EVENT DATE: 2014
